FAERS Safety Report 7959102-5 (Version None)
Quarter: 2011Q4

REPORT INFORMATION
  Report Type: 
  Country: None (occurrence: None)
  Receive Date: 20111206
  Receipt Date: 20111206
  Transmission Date: 20120403
  Serious: Yes (Other)
  Sender: FDA-Public Use
  Company Number: None

PATIENT
  Age: 84 Year
  Sex: Female
  Weight: 53.523 kg

DRUGS (6)
  1. VITAMIN B-12 [Concomitant]
  2. FENTANYL-100 [Suspect]
     Indication: BONE PAIN
     Dosage: 12MCG
     Route: 062
  3. PROAIR HFA [Concomitant]
  4. CARTIA XT [Concomitant]
  5. ASPIRIN [Concomitant]
  6. VITAMIN D [Concomitant]

REACTIONS (5)
  - PRODUCT ADHESION ISSUE [None]
  - BLOOD BLISTER [None]
  - SKIN DISORDER [None]
  - PRURITUS [None]
  - CONTUSION [None]
